FAERS Safety Report 8737937 (Version 7)
Quarter: 2013Q1

REPORT INFORMATION
  Report Type: Report from Study
  Country: DE (occurrence: DE)
  Receive Date: 20120823
  Receipt Date: 20130102
  Transmission Date: 20140127
  Serious: Yes (Hospitalization)
  Sender: FDA-Public Use
  Company Number: DE-MERCK-1208DEU006034

PATIENT
  Age: 46 Year
  Sex: Male
  Weight: 85.8 kg

DRUGS (15)
  1. PEGINTRON [Suspect]
     Indication: CHRONIC HEPATITIS C
     Dosage: 0.5 ML, QW
     Route: 058
     Dates: start: 20111213, end: 20120608
  2. PEGINTRON [Suspect]
     Dosage: 0.5 ML, QW
     Route: 058
     Dates: start: 20120622, end: 20120803
  3. REBETOL [Suspect]
     Indication: CHRONIC HEPATITIS C
     Dosage: 3 DF FIRST DOSE
     Route: 048
     Dates: start: 20111212, end: 20111212
  4. REBETOL [Suspect]
     Dosage: 3 DF, QPM
     Route: 048
     Dates: start: 20111212
  5. REBETOL [Suspect]
     Dosage: 3 DF, QAM
     Route: 048
     Dates: start: 20111213
  6. BLINDED BOCEPREVIR [Suspect]
     Indication: CHRONIC HEPATITIS C
     Dosage: UNK
     Route: 048
     Dates: start: 20111212, end: 20120305
  7. BLINDED MK-5172 [Suspect]
     Indication: CHRONIC HEPATITIS C
     Dosage: UNK
     Route: 048
     Dates: start: 20111212, end: 20120305
  8. BLINDED PEGINTERFERON ALFA-2B [Suspect]
     Indication: CHRONIC HEPATITIS C
     Dosage: UNK
     Route: 048
     Dates: start: 20111212, end: 20120305
  9. BLINDED PLACEBO [Suspect]
     Indication: CHRONIC HEPATITIS C
     Dosage: UNK
     Route: 048
     Dates: start: 20111212, end: 20120305
  10. BLINDED POST TRIAL THERAPY [Suspect]
     Indication: CHRONIC HEPATITIS C
     Dosage: UNK
     Route: 048
     Dates: start: 20111212, end: 20120305
  11. BLINDED PRE TRIAL THERAPY [Suspect]
     Indication: CHRONIC HEPATITIS C
     Dosage: UNK
     Route: 048
     Dates: start: 20111212, end: 20120305
  12. BLINDED RIBAVIRIN [Suspect]
     Indication: CHRONIC HEPATITIS C
     Dosage: UNK
     Route: 048
     Dates: start: 20111212, end: 20120305
  13. BLINDED THERAPY [Suspect]
     Indication: CHRONIC HEPATITIS C
     Dosage: UNK
     Route: 048
     Dates: start: 20120109, end: 20120530
  14. AMLODIPINE [Concomitant]
     Indication: HYPERTENSION
     Dosage: 10 MG, QD
     Route: 048
     Dates: start: 20111213
  15. ACETAMINOPHEN [Concomitant]
     Indication: PROPHYLAXIS
     Dosage: UNK UNK, PRN
     Route: 048
     Dates: start: 20111214, end: 20120806

REACTIONS (1)
  - Facial paresis [Not Recovered/Not Resolved]
